FAERS Safety Report 7754273-8 (Version None)
Quarter: 2011Q3

REPORT INFORMATION
  Report Type: 
  Country: None (occurrence: None)
  Receive Date: 20110915
  Receipt Date: 20110907
  Transmission Date: 20111222
  Serious: Yes (Hospitalization, Other)
  Sender: FDA-Public Use
  Company Number: US-ELI_LILLY_AND_COMPANY-US201109003226

PATIENT
  Sex: Female

DRUGS (7)
  1. HUMALOG [Suspect]
     Dosage: SLIDING SCALE, TID
     Route: 065
  2. HUMALOG [Suspect]
     Dosage: SLIDING SCALE, TID
     Route: 065
     Dates: start: 20060101, end: 20101001
  3. HYDRALAZINE HCL [Concomitant]
     Indication: BLOOD PRESSURE INCREASED
     Dosage: UNK, BID
  4. HUMALOG [Suspect]
     Indication: TYPE 2 DIABETES MELLITUS
     Dosage: SLIDING SCALE, TID
     Route: 065
     Dates: start: 20101001
  5. SIMVASTATIN [Concomitant]
     Indication: BLOOD CHOLESTEROL
     Dosage: 40 MG, QD
  6. LEVEMIR [Concomitant]
     Dosage: 18 U, EACH EVENING
  7. VITAMIN D [Concomitant]
     Dosage: 50000 IU, WEEKLY (1/W)

REACTIONS (5)
  - FLUID RETENTION [None]
  - GENERALISED OEDEMA [None]
  - VISUAL IMPAIRMENT [None]
  - EYE DISORDER [None]
  - OEDEMA PERIPHERAL [None]
